FAERS Safety Report 8778567 (Version 1)
Quarter: 2012Q4

REPORT INFORMATION
  Report Type: 
  Country: US (occurrence: US)
  Receive Date: 20120912
  Receipt Date: 20120912
  Transmission Date: 20130627
  Serious: Yes (Other)
  Sender: FDA-Public Use
  Company Number: US-BAYER-2012-094395

PATIENT
  Age: 57 Year
  Sex: Female
  Weight: 50 kg

DRUGS (4)
  1. CAMPHO-PHENIQUE [Suspect]
  2. CLONAZEPAM [Concomitant]
  3. ESPIRONOLACTONA [Concomitant]
     Dosage: UNK
     Dates: start: 20120905, end: 20120905
  4. POTASSIUM [POTASSIUM] [Concomitant]

REACTIONS (5)
  - Chemical burns of eye [Not Recovered/Not Resolved]
  - Eye disorder [Not Recovered/Not Resolved]
  - Eye irritation [Not Recovered/Not Resolved]
  - Ocular discomfort [Not Recovered/Not Resolved]
  - Visual impairment [Not Recovered/Not Resolved]
